FAERS Safety Report 15038572 (Version 1)
Quarter: 2018Q2

REPORT INFORMATION
  Report Type: Spontaneous
  Country: US (occurrence: US)
  Receive Date: 20180620
  Receipt Date: 20180620
  Transmission Date: 20180711
  Serious: No
  Sender: FDA-Public Use
  Company Number: US-BRAEBURN PHARMACEUTICALS, INC.-2018BBN00053

PATIENT
  Age: 37 Year
  Sex: Female
  Weight: 102.49 kg

DRUGS (1)
  1. PROBUPHINE [Suspect]
     Active Substance: BUPRENORPHINE HYDROCHLORIDE
     Indication: DRUG DEPENDENCE
     Dosage: 4 RODS, IN BETWEEN HER SHOULDER AND ELBOW, INNER SIDE OF THE LEFT ARM
     Dates: start: 20180316

REACTIONS (8)
  - Drug effect decreased [Not Recovered/Not Resolved]
  - Yawning [Not Recovered/Not Resolved]
  - Off label use [Not Recovered/Not Resolved]
  - Feeling abnormal [Not Recovered/Not Resolved]
  - Irritability [Not Recovered/Not Resolved]
  - Ear infection [Recovered/Resolved]
  - Fatigue [Not Recovered/Not Resolved]
  - Withdrawal syndrome [Not Recovered/Not Resolved]

NARRATIVE: CASE EVENT DATE: 20180316
